FAERS Safety Report 24245795 (Version 2)
Quarter: 2024Q3

REPORT INFORMATION
  Report Type: Report from Study
  Country: TR (occurrence: TR)
  Receive Date: 20240824
  Receipt Date: 20240910
  Transmission Date: 20241017
  Serious: Yes (Other)
  Sender: ABBVIE
  Company Number: TR-ABBVIE-5889444

PATIENT
  Age: 60 Year
  Sex: Female

DRUGS (7)
  1. CARBIDOPA\LEVODOPA [Suspect]
     Active Substance: CARBIDOPA\LEVODOPA
     Indication: Product used for unknown indication
     Dosage: MORNING DOSE (ML): 4.00 CONTINIOUS DOSE (ML): 2.70 EXTRA DOSE (ML): 1.00
     Route: 050
     Dates: start: 20240819
  2. CARBIDOPA\LEVODOPA [Suspect]
     Active Substance: CARBIDOPA\LEVODOPA
  3. DIAZEPAM [Concomitant]
     Active Substance: DIAZEPAM
     Indication: Agitation
     Route: 042
     Dates: start: 20240820, end: 20240820
  4. DOPADEX SR [Concomitant]
     Indication: Parkinson^s disease
     Route: 048
  5. XANAX [Concomitant]
     Active Substance: ALPRAZOLAM
     Indication: Parkinson^s disease
  6. PHENIRAMINE [Concomitant]
     Active Substance: PHENIRAMINE
     Indication: Anaphylactic reaction
     Route: 042
     Dates: start: 20240820, end: 20240820
  7. DEKORT [Concomitant]
     Active Substance: DEXAMETHASONE
     Indication: Anaphylactic reaction
     Route: 042
     Dates: start: 20240820, end: 20240820

REACTIONS (4)
  - Anaphylactic reaction [Recovered/Resolved]
  - Rash [Recovered/Resolved]
  - Blood pressure increased [Recovered/Resolved]
  - Agitation [Recovered/Resolved]

NARRATIVE: CASE EVENT DATE: 20240820
